FAERS Safety Report 9542930 (Version 2)
Quarter: 2013Q4

REPORT INFORMATION
  Report Type: Report from Study
  Country: CA (occurrence: CA)
  Receive Date: 20130923
  Receipt Date: 20131121
  Transmission Date: 20140711
  Serious: Yes (Hospitalization)
  Sender: FDA-Public Use
  Company Number: CA-UCBSA-097779

PATIENT
  Age: 84 Year
  Sex: Female
  Weight: 81.6 kg

DRUGS (2)
  1. CIMZIA [Suspect]
     Indication: RHEUMATOID ARTHRITIS
     Route: 058
     Dates: start: 20101008
  2. CIMZIA [Suspect]
     Indication: RHEUMATOID ARTHRITIS
     Route: 058
     Dates: start: 20100827, end: 20100924

REACTIONS (3)
  - Hip fracture [Recovered/Resolved]
  - Muscle injury [Recovering/Resolving]
  - Rheumatoid arthritis [Unknown]
